FAERS Safety Report 9698513 (Version 6)
Quarter: 2014Q3

REPORT INFORMATION
  Report Type: Spontaneous
  Country: US (occurrence: None)
  Receive Date: 20131115
  Receipt Date: 20140925
  Transmission Date: 20150326
  Serious: Yes (Death, Hospitalization)
  Sender: FDA-Public Use
  Company Number: 2013US002503

PATIENT
  Age: 66 Year
  Sex: Male
  Weight: 111 kg

DRUGS (13)
  1. ASPIRIN (ASPIRIN) [Concomitant]
     Active Substance: ASPIRIN
  2. FENTANYL (FENTANYL) [Concomitant]
     Active Substance: FENTANYL
  3. OXYCODONE (OXYCODONE) [Concomitant]
     Active Substance: OXYCODONE
  4. CELEXA [Concomitant]
     Active Substance: CITALOPRAM HYDROBROMIDE
  5. PONATINIB [Suspect]
     Active Substance: PONATINIB
     Indication: GASTROINTESTINAL STROMAL TUMOUR
     Dosage: 45 MG, QD, ORAL
     Route: 048
     Dates: start: 20130903, end: 20130908
  6. ZOCOR [Concomitant]
     Active Substance: SIMVASTATIN
  7. PRILOSEC (OMEPRAZOLE) [Concomitant]
     Active Substance: OMEPRAZOLE MAGNESIUM
  8. COLACE [Concomitant]
     Active Substance: DOCUSATE SODIUM
  9. NOVOLOG [Concomitant]
     Active Substance: INSULIN ASPART
  10. ATIVAN [Concomitant]
     Active Substance: LORAZEPAM
  11. SENOKOT (SENNOSIDE A+B) [Concomitant]
  12. LISINOPHIL (LISINOPRIL) [Concomitant]
  13. TERAZOSIN (TERAZOSIN HYDROCHLORIDE) [Concomitant]

REACTIONS (20)
  - Lung consolidation [None]
  - Confusional state [None]
  - Dyspnoea [None]
  - Blood glucose increased [None]
  - Renal failure [None]
  - Unresponsive to stimuli [None]
  - Blood alkaline phosphatase increased [None]
  - Pulse absent [None]
  - Lethargy [None]
  - Blood albumin decreased [None]
  - Red blood cell count decreased [None]
  - Pneumonia [None]
  - Electrocardiogram T wave abnormal [None]
  - Aspartate aminotransferase increased [None]
  - Respiratory arrest [None]
  - Sinus tachycardia [None]
  - QRS axis abnormal [None]
  - Troponin increased [None]
  - Haemoglobin decreased [None]
  - Haematocrit decreased [None]

NARRATIVE: CASE EVENT DATE: 20130908
